FAERS Safety Report 5166421-7 (Version None)
Quarter: 2006Q4

REPORT INFORMATION
  Report Type: 
  Country: None (occurrence: None)
  Receive Date: 20061129
  Receipt Date: 20061116
  Transmission Date: 20070319
  Serious: Yes (Hospitalization)
  Sender: FDA-Public Use
  Company Number: US018891

PATIENT
  Age: 35 Year
  Sex: Male

DRUGS (1)
  1. PROVIGIL [Suspect]
     Indication: CIRCADIAN RHYTHM SLEEP DISORDER
     Dosage: 200 MG, ORAL
     Route: 048
     Dates: start: 20021101, end: 20061101

REACTIONS (1)
  - ATRIAL FIBRILLATION [None]
